FAERS Safety Report 8533748-8 (Version None)
Quarter: 2012Q3

REPORT INFORMATION
  Report Type: 
  Country: None (occurrence: None)
  Receive Date: 20120711
  Receipt Date: 20120622
  Transmission Date: 20120928
  Serious: Yes (Death)
  Sender: FDA-Public Use
  Company Number: ADR-UNK-062

PATIENT

DRUGS (2)
  1. LOPINAVIR+RITONAVIR (KALETRA,ALUVIA,LPV/R) [Concomitant]
  2. LAMIVUDINE/ZIDOVUDINE [Suspect]
     Indication: ACQUIRED IMMUNODEFICIENCY SYNDROME
     Dosage: 1COURSE 2 TAB/CAPS/ORAL
     Route: 048
     Dates: start: 20110324

REACTIONS (3)
  - STILLBIRTH [None]
  - PREMATURE BABY [None]
  - MATERNAL DRUGS AFFECTING FOETUS [None]
